FAERS Safety Report 11692365 (Version 1)
Quarter: 2015Q4

REPORT INFORMATION
  Report Type: Spontaneous
  Country: US (occurrence: None)
  Receive Date: 20151102
  Receipt Date: 20151102
  Transmission Date: 20160304
  Serious: Yes (Life-Threatening, Hospitalization, Disabling)
  Sender: FDA-Public Use
  Company Number: None

PATIENT
  Age: 16 Year
  Sex: Female
  Weight: 48 kg

DRUGS (2)
  1. EPIPEN [Suspect]
     Active Substance: EPINEPHRINE
     Indication: RASH
     Dosage: ONE TIME USE
     Route: 030
  2. EPIPEN [Suspect]
     Active Substance: EPINEPHRINE
     Indication: DYSPNOEA
     Dosage: ONE TIME USE
     Route: 030

REACTIONS (3)
  - Injection site reaction [None]
  - Septic shock [None]
  - Necrotising myositis [None]

NARRATIVE: CASE EVENT DATE: 20151025
